FAERS Safety Report 8691209 (Version 2)
Quarter: 2012Q4

REPORT INFORMATION
  Report Type: Spontaneous
  Country: US (occurrence: None)
  Receive Date: 20120712
  Receipt Date: 20121003
  Transmission Date: 20130627
  Serious: Yes (Hospitalization)
  Sender: FDA-Public Use
  Company Number: 201207007

PATIENT
  Age: 81 Year
  Sex: Female
  Weight: 58.51 kg

DRUGS (3)
  1. XIAFLEX [Suspect]
     Indication: DUPUYTREN^S CONTRACTURE
     Dosage: 1 IN 1 D, INTRALESIONAL
     Dates: start: 20110517, end: 20110517
  2. LEVOXYL [Concomitant]
  3. METOPROLOL SUCCINATE ER (METOPROLOL SUCCINATE) [Concomitant]

REACTIONS (2)
  - Drug ineffective [None]
  - Atrial fibrillation [None]
